FAERS Safety Report 12242734 (Version 3)
Quarter: 2017Q1

REPORT INFORMATION
  Report Type: Spontaneous
  Country: US (occurrence: US)
  Receive Date: 20160406
  Receipt Date: 20170328
  Transmission Date: 20170428
  Serious: Yes (Other)
  Sender: FDA-Public Use
  Company Number: US-ELI_LILLY_AND_COMPANY-US201603011158

PATIENT
  Sex: Female
  Weight: 67.57 kg

DRUGS (3)
  1. CYMBALTA [Suspect]
     Active Substance: DULOXETINE HYDROCHLORIDE
     Indication: PAIN
     Dosage: UNK, UNKNOWN
     Route: 065
     Dates: start: 20120131
  2. CYMBALTA [Suspect]
     Active Substance: DULOXETINE HYDROCHLORIDE
     Indication: MOOD ALTERED
     Dosage: UNK, UNKNOWN
     Route: 065
  3. CYMBALTA [Suspect]
     Active Substance: DULOXETINE HYDROCHLORIDE
     Indication: DEPRESSION
     Dosage: UNK, UNKNOWN
     Route: 065

REACTIONS (22)
  - Nightmare [Unknown]
  - Nausea [Unknown]
  - Decreased appetite [Unknown]
  - Withdrawal syndrome [Unknown]
  - Vomiting [Unknown]
  - Diarrhoea [Unknown]
  - Paraesthesia oral [Unknown]
  - Night sweats [Unknown]
  - Neck pain [Unknown]
  - Vision blurred [Unknown]
  - Mood swings [Unknown]
  - Paraesthesia [Unknown]
  - Panic attack [Unknown]
  - Headache [Unknown]
  - Anxiety [Unknown]
  - Migraine [Unknown]
  - Suicidal ideation [Unknown]
  - Vertigo [Unknown]
  - Sleep disorder [Unknown]
  - Musculoskeletal pain [Unknown]
  - Back pain [Unknown]
  - Formication [Unknown]
